FAERS Safety Report 6925202-1 (Version None)
Quarter: 2010Q3

REPORT INFORMATION
  Report Type: 
  Country: None (occurrence: None)
  Receive Date: 20100810
  Receipt Date: 20100802
  Transmission Date: 20110219
  Serious: No
  Sender: FDA-Public Use
  Company Number: WAES 1004USA03892

PATIENT
  Sex: Male

DRUGS (1)
  1. TOP IVOMEC POUR ON UNK [Suspect]
     Indication: DRUG ADMINISTRATION ERROR
     Dosage: TOP
     Route: 061
     Dates: start: 20100415

REACTIONS (5)
  - ACCIDENTAL EXPOSURE [None]
  - COUGH [None]
  - DRUG INEFFECTIVE [None]
  - DYSPNOEA [None]
  - HEADACHE [None]
